FAERS Safety Report 20222818 (Version 2)
Quarter: 2022Q1

REPORT INFORMATION
  Report Type: Report from Study
  Country: IN (occurrence: IN)
  Receive Date: 20211223
  Receipt Date: 20220221
  Transmission Date: 20220424
  Serious: Yes (Hospitalization)
  Sender: FDA-Public Use
  Company Number: IN-TAKEDA-2021TUS079810

PATIENT
  Sex: Female

DRUGS (2)
  1. VEDOLIZUMAB [Suspect]
     Active Substance: VEDOLIZUMAB
     Indication: Crohn^s disease
     Dosage: 300 MILLIGRAM
     Route: 042
     Dates: start: 20210206
  2. FOLIC ACID\IRON POLYMALTOSE [Suspect]
     Active Substance: FOLIC ACID\IRON POLYMALTOSE
     Indication: Product used for unknown indication
     Dosage: UNK
     Route: 065

REACTIONS (4)
  - Blood iron decreased [Unknown]
  - COVID-19 [Unknown]
  - Weight decreased [Unknown]
  - Abdominal distension [Unknown]
